FAERS Safety Report 9182626 (Version 1)
Quarter: 2013Q1

REPORT INFORMATION
  Report Type: Spontaneous
  Country: US (occurrence: US)
  Receive Date: 20130322
  Receipt Date: 20130322
  Transmission Date: 20140127
  Serious: No
  Sender: FDA-Public Use
  Company Number: US-BRISTOL-MYERS SQUIBB COMPANY-16852733

PATIENT
  Age: 55 Year
  Sex: Female
  Weight: 55.78 kg

DRUGS (5)
  1. ERBITUX [Suspect]
     Indication: CARCINOID TUMOUR
     Dosage: LAST INF ON 19JUL12?INTER FOR A MONTH
     Dates: start: 201204
  2. CAMPTOSAR [Suspect]
     Dosage: INTER FOR 1 MONTH
  3. ZOMETA [Suspect]
     Dosage: INTER FOR 1 MONTH
  4. XELODA [Suspect]
     Dosage: 3000MG/DAY FOR 2 WEEKS THEN OFF A WEEK ?INTER FOR 1 MONTH
  5. SANDOSTATIN [Suspect]
     Dosage: INTER FOR 1 MONTH

REACTIONS (6)
  - Rash [Recovering/Resolving]
  - Diarrhoea [Recovered/Resolved]
  - Neuropathy peripheral [Recovered/Resolved]
  - Tooth fracture [Recovered/Resolved]
  - Nasal ulcer [Recovering/Resolving]
  - Epistaxis [Unknown]
